FAERS Safety Report 20196251 (Version 1)
Quarter: 2021Q4

REPORT INFORMATION
  Report Type: Spontaneous
  Country: US (occurrence: US)
  Receive Date: 20211216
  Receipt Date: 20211216
  Transmission Date: 20220303
  Serious: Yes (Other)
  Sender: FDA-Public Use
  Company Number: US-OTSUKA-2021_043084

PATIENT
  Sex: Female

DRUGS (4)
  1. SAMSCA [Suspect]
     Active Substance: TOLVAPTAN
     Indication: Hyponatraemia
     Dosage: 1/2 TABLET BY MOUTH ,BIW ON MONDAYS AND THURSDAYS
     Route: 065
  2. SAMSCA [Suspect]
     Active Substance: TOLVAPTAN
     Indication: Blood osmolarity decreased
  3. SAMSCA [Suspect]
     Active Substance: TOLVAPTAN
     Indication: Oedema
  4. SAMSCA [Suspect]
     Active Substance: TOLVAPTAN
     Indication: Osteoporosis

REACTIONS (4)
  - Hip fracture [Unknown]
  - Cardiac disorder [Unknown]
  - Product use in unapproved indication [Unknown]
  - Inappropriate schedule of product administration [Unknown]
